FAERS Safety Report 10608403 (Version 1)
Quarter: 2014Q4

REPORT INFORMATION
  Report Type: Spontaneous
  Country: DE (occurrence: DE)
  Receive Date: 20141125
  Receipt Date: 20141125
  Transmission Date: 20150529
  Serious: Yes (Other)
  Sender: FDA-Public Use
  Company Number: DE-TEVA-524342GER

PATIENT
  Sex: Female

DRUGS (1)
  1. INDOMET-RATIOPHARM 50 MG HARTKAPSELN [Suspect]
     Active Substance: INDOMETHACIN
     Indication: ARTHROSCOPY
     Route: 048

REACTIONS (1)
  - Cerebrovascular accident [Unknown]
